FAERS Safety Report 6818803-2 (Version None)
Quarter: 2010Q2

REPORT INFORMATION
  Report Type: 
  Country: None (occurrence: None)
  Receive Date: 20100630
  Receipt Date: 20100617
  Transmission Date: 20101027
  Serious: Yes (Hospitalization)
  Sender: FDA-Public Use
  Company Number: IDA-00376

PATIENT
  Age: 86 Year
  Sex: Female

DRUGS (7)
  1. INDERAL [Suspect]
     Indication: EXTRASYSTOLES
     Dosage: 30 MG DAILY, ORAL
     Route: 048
     Dates: start: 20100101, end: 20100330
  2. CORDARONE [Suspect]
     Indication: EXTRASYSTOLES
     Dosage: 200 MG DAILY, ORAL
     Route: 048
     Dates: start: 20100101, end: 20100330
  3. PRAVASTATIN SODIUM [Concomitant]
  4. ADALAT CC [Concomitant]
  5. PRISNA (MESOGLYCAN) [Concomitant]
  6. ASPIRIN [Concomitant]
  7. CALCIUM CARBONATE [Concomitant]

REACTIONS (4)
  - BRADYCARDIA [None]
  - NODAL RHYTHM [None]
  - SUPRAVENTRICULAR EXTRASYSTOLES [None]
  - VENTRICULAR EXTRASYSTOLES [None]
